FAERS Safety Report 8551760 (Version 3)
Quarter: 2013Q4

REPORT INFORMATION
  Report Type: Spontaneous
  Country: US (occurrence: US)
  Receive Date: 20120508
  Receipt Date: 20131023
  Transmission Date: 20140711
  Serious: Yes (Life-Threatening, Hospitalization)
  Sender: FDA-Public Use
  Company Number: US-BAYER-2012-043238

PATIENT
  Age: 18 Year
  Sex: Female

DRUGS (4)
  1. YAZ [Suspect]
     Dosage: UNK
  2. YASMIN [Suspect]
     Dosage: UNK
  3. OCELLA [Suspect]
     Dosage: UNK
  4. CLARITHROMYCIN [Concomitant]
     Dosage: 500 MG, BID

REACTIONS (6)
  - Pulmonary embolism [None]
  - Injury [None]
  - Pain [None]
  - General physical health deterioration [None]
  - Anxiety [None]
  - Anhedonia [None]
